FAERS Safety Report 9753240 (Version 3)
Quarter: 2015Q3

REPORT INFORMATION
  Report Type: Spontaneous
  Country: US (occurrence: US)
  Receive Date: 20131213
  Receipt Date: 20150805
  Transmission Date: 20151125
  Serious: No
  Sender: FDA-Public Use
  Company Number: US-GILEAD-2010-0027260

PATIENT
  Age: 61 Year
  Sex: Male
  Weight: 127.91 kg

DRUGS (29)
  1. COUMADIN [Concomitant]
     Active Substance: WARFARIN SODIUM
  2. LEVOTHYROXINE. [Concomitant]
     Active Substance: LEVOTHYROXINE
  3. METOCLOPRAMIDE. [Concomitant]
     Active Substance: METOCLOPRAMIDE
  4. IPRATROPIUM BROMIDE. [Concomitant]
     Active Substance: IPRATROPIUM BROMIDE
  5. ZOCOR [Concomitant]
     Active Substance: SIMVASTATIN
  6. TRAZODONE [Concomitant]
     Active Substance: TRAZODONE HYDROCHLORIDE
  7. RANITIDINE [Concomitant]
     Active Substance: RANITIDINE\RANITIDINE HYDROCHLORIDE
  8. METOPROLOL [Concomitant]
     Active Substance: METOPROLOL
  9. FUROSEMIDE. [Concomitant]
     Active Substance: FUROSEMIDE
  10. BUSPAR [Concomitant]
     Active Substance: BUSPIRONE HYDROCHLORIDE
  11. FOLIC ACID. [Concomitant]
     Active Substance: FOLIC ACID
  12. LORATADINE. [Concomitant]
     Active Substance: LORATADINE
  13. FLEXERIL [Concomitant]
     Active Substance: CYCLOBENZAPRINE HYDROCHLORIDE
  14. DIPHENOXYLATE/ATROP SUL [Concomitant]
  15. LETAIRIS [Suspect]
     Active Substance: AMBRISENTAN
     Indication: PULMONARY ARTERIAL HYPERTENSION
     Route: 048
  16. GABAPENTIN. [Concomitant]
     Active Substance: GABAPENTIN
  17. TIZANIDINE. [Concomitant]
     Active Substance: TIZANIDINE
  18. MORPHINE [Concomitant]
     Active Substance: MORPHINE
  19. POLYETHYLENE GLY FLAKE [Concomitant]
  20. LETAIRIS [Suspect]
     Active Substance: AMBRISENTAN
     Route: 048
     Dates: start: 20090302
  21. LISINOPRIL. [Concomitant]
     Active Substance: LISINOPRIL
  22. PROVIGIL [Concomitant]
     Active Substance: MODAFINIL
  23. SIMVASTATIN. [Concomitant]
     Active Substance: SIMVASTATIN
  24. VICODIN ES [Concomitant]
     Active Substance: ACETAMINOPHEN\HYDROCODONE BITARTRATE
  25. OXYCODONE [Concomitant]
     Active Substance: OXYCODONE
  26. LIBRAX [Concomitant]
     Active Substance: CHLORDIAZEPOXIDE HYDROCHLORIDE\CLIDINIUM BROMIDE
  27. SUCRALFATE. [Concomitant]
     Active Substance: SUCRALFATE
  28. LOPERAMIDE [Concomitant]
     Active Substance: LOPERAMIDE
  29. FORMOTEROL FUMARATE [Concomitant]
     Active Substance: FORMOTEROL FUMARATE

REACTIONS (2)
  - Liver function test abnormal [Recovered/Resolved]
  - Dizziness [Unknown]

NARRATIVE: CASE EVENT DATE: 20091208
